FAERS Safety Report 4360265-1 (Version None)
Quarter: 2004Q2

REPORT INFORMATION
  Report Type: 
  Country: None (occurrence: None)
  Receive Date: 20040513
  Receipt Date: 20040504
  Transmission Date: 20050107
  Serious: Yes (Hospitalization)
  Sender: FDA-Public Use
  Company Number: DEWYE741605MAY04

PATIENT
  Age: 18 Year
  Sex: Female

DRUGS (5)
  1. TAZOBAC (PIPERACILLIN/ TAZOBACTAM, INJECTION) [Suspect]
     Indication: CELLULITIS
     Dosage: 4.5 G 3X PER 1 DAY INTRAVENOUS
     Route: 042
     Dates: start: 20040221, end: 20040223
  2. CEPHORAL (CEFIXIME, UNSPEC) [Suspect]
     Indication: PYELONEPHRITIS ACUTE
     Dosage: 200 MG 2X PER 1 DAY ORAL
     Route: 048
     Dates: start: 20040217, end: 20040221
  3. METAMIZOLE (METAMIZOLE) [Suspect]
     Indication: PAIN
     Dosage: IM
     Route: 030
     Dates: start: 20040217, end: 20040218
  4. ENOXAPARIN SODIUM [Concomitant]
  5. XYZAL (LEVOCETIRIZINE) [Concomitant]

REACTIONS (2)
  - BLEEDING TIME PROLONGED [None]
  - LEUKOCYTOCLASTIC VASCULITIS [None]
